FAERS Safety Report 7145806-3 (Version None)
Quarter: 2010Q4

REPORT INFORMATION
  Report Type: 
  Country: None (occurrence: None)
  Receive Date: 20101208
  Receipt Date: 20101124
  Transmission Date: 20110411
  Serious: Yes (Congenital Anomaly)
  Sender: FDA-Public Use
  Company Number: A0898160A

PATIENT
  Sex: Male

DRUGS (6)
  1. PAXIL [Suspect]
     Dosage: 10MG PER DAY
     Dates: start: 20011114, end: 20021218
  2. RISPERDAL [Concomitant]
  3. DEPAKOTE [Concomitant]
  4. LITHIUM CARBONATE [Concomitant]
  5. PRENATAL VITAMINS [Concomitant]
  6. CITRACAL [Concomitant]

REACTIONS (3)
  - CARDIAC MURMUR [None]
  - DRUG EXPOSURE DURING PREGNANCY [None]
  - VENTRICULAR SEPTAL DEFECT [None]
